FAERS Safety Report 16073053 (Version 3)
Quarter: 2019Q1

REPORT INFORMATION
  Report Type: Spontaneous
  Country: US (occurrence: US)
  Receive Date: 20190314
  Receipt Date: 20190327
  Transmission Date: 20190418
  Serious: No
  Sender: FDA-Public Use
  Company Number: US-SA-2019SA068250

PATIENT
  Age: 91 Year
  Sex: Male

DRUGS (2)
  1. LANTUS [Suspect]
     Active Substance: INSULIN GLARGINE
     Indication: DIABETES MELLITUS
     Dosage: 33 U, QD
  2. NOVOLOG [Suspect]
     Active Substance: INSULIN ASPART
     Dosage: 5-8 UNITS WITH MEALS

REACTIONS (5)
  - Blood glucose increased [Unknown]
  - Device issue [Unknown]
  - Needle issue [Unknown]
  - Injection site pain [Unknown]
  - Product use issue [Unknown]
